FAERS Safety Report 24077055 (Version 1)
Quarter: 2024Q3

REPORT INFORMATION
  Report Type: Spontaneous
  Country: SK (occurrence: SK)
  Receive Date: 20240711
  Receipt Date: 20240711
  Transmission Date: 20241016
  Serious: No
  Sender: PIERRE FABRE MEDICAMENT
  Company Number: SK-PFM-2023-05350

PATIENT
  Sex: Male

DRUGS (2)
  1. PROPRANOLOL HYDROCHLORIDE [Suspect]
     Active Substance: PROPRANOLOL HYDROCHLORIDE
     Indication: Infantile haemangioma
     Dosage: UNK, AT THE AGE OF THE CHILD 32-33 MONTHS
     Route: 048
     Dates: start: 202205
  2. PROPRANOLOL [Suspect]
     Active Substance: PROPRANOLOL HYDROCHLORIDE
     Indication: Haemangioma
     Dosage: UNK, AT THE AGE OF THE CHILD 32-33 MONTHS
     Route: 048

REACTIONS (3)
  - Product administered to patient of inappropriate age [Unknown]
  - Product use issue [Unknown]
  - Off label use [Unknown]
